FAERS Safety Report 7788355-1 (Version None)
Quarter: 2011Q3

REPORT INFORMATION
  Report Type: 
  Country: None (occurrence: None)
  Receive Date: 20110929
  Receipt Date: 20110929
  Transmission Date: 20111222
  Serious: No
  Sender: FDA-Public Use
  Company Number: None

PATIENT
  Age: 50 Year
  Sex: Male

DRUGS (3)
  1. ALEVE [Suspect]
     Indication: LIVER INJURY
     Dates: start: 20091218, end: 20091201
  2. GYPSY COLD CARE [Suspect]
     Indication: LIVER INJURY
     Dates: start: 20091218, end: 20100109
  3. MEGA MEN 50 PLUS [Suspect]
     Indication: LIVER INJURY
     Dates: end: 20100423

REACTIONS (7)
  - ABDOMINAL DISCOMFORT [None]
  - ASPARTATE AMINOTRANSFERASE INCREASED [None]
  - ALANINE AMINOTRANSFERASE INCREASED [None]
  - BLOOD BILIRUBIN INCREASED [None]
  - LIVER INJURY [None]
  - BLOOD ALKALINE PHOSPHATASE INCREASED [None]
  - HEPATITIS C [None]
